FAERS Safety Report 8607007-9 (Version None)
Quarter: 2012Q3

REPORT INFORMATION
  Report Type: 
  Country: None (occurrence: None)
  Receive Date: 20120820
  Receipt Date: 20120809
  Transmission Date: 20120928
  Serious: Yes (Other)
  Sender: FDA-Public Use
  Company Number: US-RB-043492-12

PATIENT
  Age: 47 Year
  Sex: Male

DRUGS (4)
  1. SUBOXONE [Suspect]
     Indication: PAIN
     Dosage: SUBOXONE FILM; 6-8 MG/DAILY
     Route: 060
     Dates: start: 20120401, end: 20120806
  2. SUBOXONE [Suspect]
     Dosage: SUBOXONE FILM; 6-8 MG/DAILY
     Route: 060
     Dates: start: 20120401, end: 20120806
  3. SUBOXONE [Suspect]
     Indication: PAIN
     Dosage: 6-8 MG/DAILY
     Route: 060
     Dates: start: 20120807
  4. SUBOXONE [Suspect]
     Indication: DRUG DEPENDENCE
     Dosage: 6-8 MG/DAILY
     Route: 060
     Dates: start: 20120807

REACTIONS (4)
  - WRONG TECHNIQUE IN DRUG USAGE PROCESS [None]
  - INTENTIONAL DRUG MISUSE [None]
  - OFF LABEL USE [None]
  - PNEUMONIA [None]
